FAERS Safety Report 21234245 (Version 1)
Quarter: 2022Q3

REPORT INFORMATION
  Report Type: Spontaneous
  Country: AU (occurrence: AU)
  Receive Date: 20220819
  Receipt Date: 20220819
  Transmission Date: 20221027
  Serious: Yes (Other)
  Sender: FDA-Public Use
  Company Number: AU-GILEAD-2022-0594305

PATIENT
  Sex: Male

DRUGS (1)
  1. YESCARTA [Suspect]
     Active Substance: AXICABTAGENE CILOLEUCEL
     Indication: Product used for unknown indication
     Dosage: UNK
     Route: 065

REACTIONS (6)
  - Pneumonitis [Recovering/Resolving]
  - Dyspnoea [Recovering/Resolving]
  - COVID-19 [Recovering/Resolving]
  - Lymphopenia [Recovering/Resolving]
  - Respiratory disorder [Recovering/Resolving]
  - Vomiting [Recovering/Resolving]
